FAERS Safety Report 10686688 (Version 2)
Quarter: 2015Q3

REPORT INFORMATION
  Report Type: Spontaneous
  Country: US (occurrence: US)
  Receive Date: 20150101
  Receipt Date: 20150909
  Transmission Date: 20151125
  Serious: No
  Sender: FDA-Public Use
  Company Number: US-GLAXOSMITHKLINE-US2014GSK044647

PATIENT
  Sex: Female

DRUGS (2)
  1. EXJADE [Concomitant]
     Active Substance: DEFERASIROX
     Dosage: UNK
  2. PROMACTA [Suspect]
     Active Substance: ELTROMBOPAG OLAMINE
     Indication: IMMUNE THROMBOCYTOPENIC PURPURA
     Dosage: 50 MG, U
     Dates: start: 20141001

REACTIONS (2)
  - Eye irritation [Unknown]
  - Dysphonia [Unknown]
